FAERS Safety Report 6742207-4 (Version None)
Quarter: 2010Q2

REPORT INFORMATION
  Report Type: 
  Country: None (occurrence: None)
  Receive Date: 20100526
  Receipt Date: 20100519
  Transmission Date: 20101027
  Serious: Yes (Hospitalization, Other)
  Sender: FDA-Public Use
  Company Number: GXKR2010DE04335

PATIENT
  Sex: Male
  Weight: 73 kg

DRUGS (1)
  1. AMOXI 1A PHARMA (NGX) [Suspect]
     Indication: SINOBRONCHITIS
     Dosage: 750 MG, ONCE/SINGLE
     Route: 048
     Dates: start: 20100415, end: 20100415

REACTIONS (5)
  - CONVULSION [None]
  - DERMATITIS ALLERGIC [None]
  - DYSPNOEA [None]
  - PAIN [None]
  - PRURITUS [None]
